FAERS Safety Report 8332529-8 (Version None)
Quarter: 2012Q2

REPORT INFORMATION
  Report Type: 
  Country: None (occurrence: None)
  Receive Date: 20120503
  Receipt Date: 20120427
  Transmission Date: 20120825
  Serious: No
  Sender: FDA-Public Use
  Company Number: US-PFIZER INC-2012105251

PATIENT
  Sex: Female
  Weight: 79.365 kg

DRUGS (1)
  1. ADVIL PM [Suspect]
     Indication: SLEEP DISORDER
     Dosage: 400/76 (TWO CAPLETS OF 200/38MG) MG, 1X/DAY
     Route: 048
     Dates: start: 20120426

REACTIONS (1)
  - PALPITATIONS [None]
